FAERS Safety Report 8130432-X (Version None)
Quarter: 2012Q1

REPORT INFORMATION
  Report Type: 
  Country: None (occurrence: None)
  Receive Date: 20120210
  Receipt Date: 20120201
  Transmission Date: 20120608
  Serious: Yes (Other)
  Sender: FDA-Public Use
  Company Number: PT-ABBOTT-12P-130-0900697-00

PATIENT
  Sex: Male
  Weight: 98 kg

DRUGS (2)
  1. FENOFIBRATE [Suspect]
     Indication: DYSLIPIDAEMIA
     Route: 048
     Dates: start: 20111219, end: 20120131
  2. CINCHOCAINE HYDROCHLORIDE [Concomitant]
     Indication: HAEMORRHOIDS
     Route: 054
     Dates: start: 20111219

REACTIONS (2)
  - RASH GENERALISED [None]
  - PRURITUS [None]
